FAERS Safety Report 19482295 (Version 2)
Quarter: 2021Q3

REPORT INFORMATION
  Report Type: Report from Study
  Country: US (occurrence: US)
  Receive Date: 20210701
  Receipt Date: 20210707
  Transmission Date: 20211014
  Serious: Yes (Other)
  Sender: FDA-Public Use
  Company Number: US-BEH-2021127984

PATIENT
  Age: 35 Year
  Sex: Male

DRUGS (7)
  1. HIZENTRA [Suspect]
     Active Substance: HUMAN IMMUNOGLOBULIN G
     Dosage: UNK
     Route: 065
     Dates: start: 20210201
  2. HIZENTRA [Suspect]
     Active Substance: HUMAN IMMUNOGLOBULIN G
     Dosage: UNK
     Route: 065
  3. HIZENTRA [Suspect]
     Active Substance: HUMAN IMMUNOGLOBULIN G
     Dosage: UNK
     Route: 065
  4. HIZENTRA [Suspect]
     Active Substance: HUMAN IMMUNOGLOBULIN G
     Dosage: 4.0, QW
     Route: 058
  5. RITUXAN [Concomitant]
     Active Substance: RITUXIMAB
     Dosage: AS ORDERED
  6. HIZENTRA [Suspect]
     Active Substance: HUMAN IMMUNOGLOBULIN G
     Indication: CHRONIC INFLAMMATORY DEMYELINATING POLYRADICULONEUROPATHY
     Dosage: 36 GRAM, QW
     Route: 065
     Dates: start: 2020, end: 202106
  7. HIZENTRA [Suspect]
     Active Substance: HUMAN IMMUNOGLOBULIN G
     Dosage: UNK
     Route: 065

REACTIONS (8)
  - Infusion site pain [Unknown]
  - Impaired healing [Not Recovered/Not Resolved]
  - Infusion site extravasation [Unknown]
  - Infusion site mass [Not Recovered/Not Resolved]
  - Infusion site ulcer [Recovered/Resolved]
  - Infusion site vesicles [Not Recovered/Not Resolved]
  - Administration site wound [Not Recovered/Not Resolved]
  - Infusion site infection [Recovered/Resolved]

NARRATIVE: CASE EVENT DATE: 20210321
